FAERS Safety Report 8943260 (Version 2)
Quarter: 2013Q2

REPORT INFORMATION
  Report Type: Spontaneous
  Country: US (occurrence: US)
  Receive Date: 20121204
  Receipt Date: 20130620
  Transmission Date: 20140414
  Serious: No
  Sender: FDA-Public Use
  Company Number: US-PFIZER INC-2012303282

PATIENT
  Age: 49 Year
  Sex: Female
  Weight: 63.49 kg

DRUGS (10)
  1. LYRICA [Suspect]
     Indication: NEURALGIA
     Dosage: 75 MG, 1X/DAY
     Route: 048
     Dates: start: 201211, end: 20121129
  2. LYRICA [Suspect]
     Indication: PAIN IN EXTREMITY
     Dosage: 75 MG, 2X/DAY
     Route: 048
     Dates: start: 201301, end: 201306
  3. LOPRESSOR [Suspect]
     Indication: BLOOD PRESSURE ABNORMAL
     Dosage: 100 MG, 1X/DAY
  4. METOPROLOL [Concomitant]
     Indication: HYPERTENSION
     Dosage: 100 MG, 1X/DAY
     Dates: start: 201105
  5. PLAVIX [Concomitant]
     Indication: PERIPHERAL VASCULAR DISORDER
     Dosage: 75 MG, 1X/DAY
  6. PLAVIX [Concomitant]
     Indication: ANTICOAGULANT THERAPY
  7. PRISTIQ [Concomitant]
     Indication: DEPRESSION
     Dosage: 50 MG, 1X/DAY
  8. ATORVASTATIN CALCIUM [Concomitant]
     Indication: BLOOD CHOLESTEROL ABNORMAL
     Dosage: 40 MG, 1X/DAY
  9. BABY ASPIRIN [Concomitant]
     Dosage: 81 MG, 1X/DAY
  10. OMEPRAZOLE [Concomitant]
     Indication: GASTROOESOPHAGEAL REFLUX DISEASE
     Dosage: 40 MG, 1X/DAY AT BEDTIME

REACTIONS (7)
  - Intentional drug misuse [Unknown]
  - Drug ineffective [Unknown]
  - Back pain [Not Recovered/Not Resolved]
  - Dizziness [Unknown]
  - Malaise [Recovering/Resolving]
  - Pain in extremity [Not Recovered/Not Resolved]
  - Local swelling [Recovered/Resolved]
